FAERS Safety Report 5800403-4 (Version None)
Quarter: 2008Q3

REPORT INFORMATION
  Report Type: 
  Country: None (occurrence: None)
  Receive Date: 20080702
  Receipt Date: 20080702
  Transmission Date: 20090109
  Serious: No
  Sender: FDA-Public Use
  Company Number: None

PATIENT
  Age: 66 Year
  Sex: Female

DRUGS (1)
  1. ALENDRONATE SODIUM [Suspect]
     Indication: OSTEOPOROSIS
     Dosage: 70MG ONCE WEEKLY PO
     Route: 048
     Dates: start: 20080615, end: 20080622

REACTIONS (2)
  - FEELING ABNORMAL [None]
  - MUSCULOSKELETAL CHEST PAIN [None]
